FAERS Safety Report 8183295-0 (Version None)
Quarter: 2012Q1

REPORT INFORMATION
  Report Type: 
  Country: None (occurrence: None)
  Receive Date: 20120305
  Receipt Date: 20120228
  Transmission Date: 20120608
  Serious: No
  Sender: FDA-Public Use
  Company Number: US-PFIZER INC-2012053748

PATIENT
  Sex: Female
  Weight: 90.7 kg

DRUGS (9)
  1. LYRICA [Suspect]
     Indication: NEUROPATHY PERIPHERAL
     Dosage: 100 MG, 2X/DAY
     Dates: start: 20120214
  2. FISH OIL [Concomitant]
     Dosage: TWO CAPSULES, DAILY
     Route: 048
  3. LYRICA [Suspect]
     Indication: LUMBAR SPINAL STENOSIS
  4. ATENOLOL [Concomitant]
     Indication: HYPERTENSION
     Dosage: 50 MG, 2X/DAY
  5. MULTI-VITAMINS [Concomitant]
     Dosage: UNK, DAILY
  6. DIOVAN [Concomitant]
     Indication: HYPERTENSION
     Dosage: ^320/25^ MG DAILY
  7. HYDROCODONE [Concomitant]
     Indication: BACK PAIN
     Dosage: ^5-500^ MG TWO TIMES A DAY
  8. TRICOR [Concomitant]
     Indication: BLOOD TRIGLYCERIDES INCREASED
     Dosage: 48 MG, DAILY
  9. VITAMIN D [Concomitant]
     Dosage: TWO CAPSULES, DAILY
     Route: 048

REACTIONS (2)
  - DIPLOPIA [None]
  - CONDITION AGGRAVATED [None]
